FAERS Safety Report 7302793-2 (Version None)
Quarter: 2011Q1

REPORT INFORMATION
  Report Type: 
  Country: None (occurrence: None)
  Receive Date: 20110218
  Receipt Date: 20110209
  Transmission Date: 20110831
  Serious: Yes (Disabling, Other)
  Sender: FDA-Public Use
  Company Number: FR-ASTRAZENECA-2010SE58983

PATIENT
  Age: 82 Year
  Sex: Female
  Weight: 60 kg

DRUGS (4)
  1. ALLOPURINOL [Concomitant]
     Indication: GOUT
     Route: 065
  2. AMLOR [Concomitant]
     Indication: HYPERTENSION
     Route: 065
  3. PLAVIX [Concomitant]
     Route: 065
  4. CRESTOR [Suspect]
     Route: 048
     Dates: start: 20050101, end: 20100919

REACTIONS (4)
  - MYALGIA [None]
  - ABDOMINAL PAIN [None]
  - PAIN OF SKIN [None]
  - HYPOAESTHESIA [None]
